FAERS Safety Report 9335262 (Version 1)
Quarter: 2013Q2

REPORT INFORMATION
  Report Type: Spontaneous
  Country: LV (occurrence: LV)
  Receive Date: 20130606
  Receipt Date: 20130606
  Transmission Date: 20140414
  Serious: Yes (Hospitalization)
  Sender: FDA-Public Use
  Company Number: LV-ROCHE-1232076

PATIENT
  Age: 23 Year
  Sex: Male

DRUGS (2)
  1. ROACCUTANE [Suspect]
     Indication: ACNE CYSTIC
     Route: 048
     Dates: start: 20130111, end: 20130313
  2. ROACCUTANE [Suspect]
     Route: 048
     Dates: start: 20130314, end: 20130530

REACTIONS (1)
  - Gastritis [Recovering/Resolving]
